FAERS Safety Report 4609508-7 (Version None)
Quarter: 2005Q1

REPORT INFORMATION
  Report Type: 
  Country: None (occurrence: None)
  Receive Date: 20050314
  Receipt Date: 20050314
  Transmission Date: 20050727
  Serious: Yes (Hospitalization)
  Sender: FDA-Public Use
  Company Number: None

PATIENT
  Age: 73 Year
  Sex: Male

DRUGS (13)
  1. BACLOFEN [Suspect]
     Indication: PAIN
     Dosage: 10 MG TID
     Dates: start: 20041201
  2. DEXAMETHASONE [Suspect]
     Indication: INFLAMMATION
     Dates: start: 20041201
  3. TRAMADOL HCL [Suspect]
     Dosage: 1-2 TID
     Dates: start: 20041201
  4. OSCAL [Concomitant]
  5. ASPIRIN [Concomitant]
  6. CLONIDINE [Concomitant]
  7. DOCUSATE [Concomitant]
  8. GUAIFENESIN [Concomitant]
  9. ISOSORBIDE [Concomitant]
  10. LISINOPRIL [Concomitant]
  11. ZOCOR [Concomitant]
  12. VITAMIN E [Concomitant]
  13. METOPROLOL [Concomitant]

REACTIONS (1)
  - MENTAL STATUS CHANGES [None]
